FAERS Safety Report 7070769-9 (Version None)
Quarter: 2010Q4

REPORT INFORMATION
  Report Type: 
  Country: None (occurrence: None)
  Receive Date: 20101027
  Receipt Date: 20101027
  Transmission Date: 20110411
  Serious: No
  Sender: FDA-Public Use
  Company Number: None

PATIENT
  Sex: Male
  Weight: 8.6183 kg

DRUGS (1)
  1. HYLANDS TEETHING TABLETS HYLANDS [Suspect]
     Indication: TEETHING
     Dosage: 2 TABLETS 1-2 TIMES A DAY PO
     Route: 048
     Dates: start: 20100901, end: 20101015

REACTIONS (1)
  - SLEEP DISORDER [None]
